FAERS Safety Report 18758070 (Version 3)
Quarter: 2023Q1

REPORT INFORMATION
  Report Type: Spontaneous
  Country: US (occurrence: US)
  Receive Date: 20210119
  Receipt Date: 20230209
  Transmission Date: 20230418
  Serious: Yes (Other)
  Sender: FDA-Public Use
  Company Number: US-PFIZER INC-2020382495

PATIENT
  Age: 56 Year
  Sex: Female

DRUGS (1)
  1. XELJANZ XR [Suspect]
     Active Substance: TOFACITINIB CITRATE
     Indication: Rheumatoid arthritis
     Dosage: 11 MG, 1X/DAY, (11 MG PO ONCE DAILY)
     Route: 048
     Dates: start: 202007

REACTIONS (3)
  - Gastritis bacterial [Unknown]
  - Hernia [Recovering/Resolving]
  - Spinal operation [Unknown]
